FAERS Safety Report 7294678-5 (Version None)
Quarter: 2011Q1

REPORT INFORMATION
  Report Type: 
  Country: None (occurrence: None)
  Receive Date: 20110216
  Receipt Date: 20110209
  Transmission Date: 20110831
  Serious: Yes (Hospitalization, Other)
  Sender: FDA-Public Use
  Company Number: BR-PFIZER INC-2010145834

PATIENT
  Sex: Female
  Weight: 68 kg

DRUGS (4)
  1. SYNTHROID [Concomitant]
     Indication: HYPERTHYROIDISM
     Dosage: UNK
  2. CHAMPIX [Suspect]
     Indication: TOBACCO USER
     Dosage: UNK
     Route: 048
     Dates: start: 20101101, end: 20101101
  3. CHAMPIX [Suspect]
     Dosage: UNK
     Dates: start: 20101111
  4. LOSARTAN POTASSIUM [Concomitant]
     Indication: HYPERTENSION
     Dosage: UNK

REACTIONS (5)
  - PAIN [None]
  - VISION BLURRED [None]
  - HAEMORRHOID OPERATION [None]
  - CONFUSIONAL STATE [None]
  - DYSPNOEA [None]
